FAERS Safety Report 18397416 (Version 4)
Quarter: 2020Q4

REPORT INFORMATION
  Report Type: Spontaneous
  Country: JP (occurrence: JP)
  Receive Date: 20201019
  Receipt Date: 20201105
  Transmission Date: 20210114
  Serious: Yes (Death)
  Sender: FDA-Public Use
  Company Number: NVSJ2020JP010046

PATIENT
  Age: 73 Year
  Sex: Male
  Weight: 58.8 kg

DRUGS (9)
  1. MEPTIN AIR [Concomitant]
     Active Substance: PROCATEROL HYDROCHLORIDE
     Indication: ASTHMA
     Dosage: 2 DF
     Route: 055
     Dates: start: 20200427, end: 20201006
  2. DESALEX [Concomitant]
     Active Substance: DESLORATADINE
     Indication: RHINITIS ALLERGIC
     Dosage: 5 MG
     Route: 048
     Dates: start: 20200417, end: 20201006
  3. HOKUNALIN [Concomitant]
     Active Substance: TULOBUTEROL
     Indication: PRODUCT USED FOR UNKNOWN INDICATION
     Dosage: 2 MG
     Route: 062
     Dates: start: 20190115, end: 20201006
  4. TOPILORIC [Concomitant]
     Active Substance: TOPIROXOSTAT
     Indication: HYPERURICAEMIA
     Dosage: 40 MG
     Route: 048
     Dates: start: 20160720, end: 20201006
  5. BORRAZA G [Concomitant]
     Active Substance: LIDOCAINE\TRIBENOSIDE
     Indication: HAEMORRHOIDS
     Dosage: 1 DF
     Route: 054
     Dates: start: 20120224, end: 20201006
  6. SG [Concomitant]
     Active Substance: ACETAMINOPHEN\APRONALIDE\CAFFEINE\PROPYPHENAZONE
     Indication: HEADACHE
     Dosage: 1 G
     Route: 048
     Dates: start: 20070824, end: 20201006
  7. ACINON [Concomitant]
     Active Substance: NIZATIDINE
     Indication: PROPHYLAXIS
     Dosage: 150 MG
     Route: 048
     Dates: start: 20191015, end: 20201006
  8. FLUTIFORM [Concomitant]
     Active Substance: FLUTICASONE PROPIONATE\FORMOTEROL FUMARATE
     Indication: ASTHMA
     Dosage: 200 UG
     Route: 055
     Dates: start: 20200410, end: 20200516
  9. ENERZAIR (MOMETASONE FUROATE\INDACATEROL ACETATE\GLYCOPYRRONIUM BROMIDE) [Suspect]
     Active Substance: GLYCOPYRROLATE\INDACATEROL\MOMETASONE FUROATE
     Indication: ASTHMA
     Dosage: 1 DF, MEDIUM (INDACATEROL ACETATE 150UG, GLYCOPYRRONIUM BROMIDE 50UG, MOMETASONE FUROATE 80UG)
     Route: 055
     Dates: start: 20201002, end: 20201006

REACTIONS (4)
  - Viral myocarditis [Fatal]
  - Productive cough [Not Recovered/Not Resolved]
  - Nasopharyngitis [Not Recovered/Not Resolved]
  - Cough [Not Recovered/Not Resolved]

NARRATIVE: CASE EVENT DATE: 20201004
